FAERS Safety Report 4889950-X (Version None)
Quarter: 2006Q1

REPORT INFORMATION
  Report Type: 
  Country: None (occurrence: None)
  Receive Date: 20060123
  Receipt Date: 20060123
  Transmission Date: 20060701
  Serious: Yes (Hospitalization)
  Sender: FDA-Public Use
  Company Number: None

PATIENT
  Sex: Female
  Weight: 109.77 kg

DRUGS (3)
  1. BETHANECHOL [Suspect]
     Indication: AUTONOMIC NERVOUS SYSTEM IMBALANCE
     Dosage: 25MG BID PO
     Route: 048
     Dates: start: 20041201, end: 20060116
  2. BETHANECHOL [Suspect]
     Indication: DIABETES MELLITUS
     Dosage: 25MG BID PO
     Route: 048
     Dates: start: 20041201, end: 20060116
  3. BETHANECHOL [Suspect]
     Indication: NEUROGENIC BLADDER
     Dosage: 25MG BID PO
     Route: 048
     Dates: start: 20041201, end: 20060116

REACTIONS (5)
  - CHILLS [None]
  - DRUG TOXICITY [None]
  - HYPERHIDROSIS [None]
  - PYREXIA [None]
  - TREMOR [None]
